FAERS Safety Report 5888371-0 (Version None)
Quarter: 2008Q3

REPORT INFORMATION
  Report Type: 
  Country: None (occurrence: None)
  Receive Date: 20080918
  Receipt Date: 20080909
  Transmission Date: 20090109
  Serious: Yes (Other)
  Sender: FDA-Public Use
  Company Number: US-WYE-H05417008

PATIENT
  Sex: Female
  Weight: 68.1 kg

DRUGS (2)
  1. EFFEXOR XR [Suspect]
     Indication: DEPRESSION
     Route: 048
     Dates: start: 20060101
  2. EFFEXOR XR [Suspect]
     Indication: ANXIETY
     Dosage: 150 MG (FREQUENCY UNKNOWN)
     Route: 048

REACTIONS (1)
  - CONVULSION [None]
